FAERS Safety Report 4321235-2 (Version None)
Quarter: 2004Q1

REPORT INFORMATION
  Report Type: 
  Country: None (occurrence: None)
  Receive Date: 20040322
  Receipt Date: 20040322
  Transmission Date: 20041129
  Serious: Yes (Hospitalization)
  Sender: FDA-Public Use
  Company Number: None

PATIENT
  Age: 39 Year
  Sex: Female
  Weight: 60.782 kg

DRUGS (2)
  1. ADRIAMYCIN  45 MG/M2 [Suspect]
     Indication: ENDOMETRIAL CANCER
     Dosage: 82 MG IV
     Route: 042
     Dates: start: 20040310
  2. CISPLATIN [Suspect]
     Indication: ENDOMETRIAL CANCER
     Dosage: 74 MG IV
     Route: 042
     Dates: start: 20040310

REACTIONS (4)
  - FATIGUE [None]
  - NAUSEA [None]
  - PERFORMANCE STATUS DECREASED [None]
  - VOMITING [None]
